FAERS Safety Report 8773533 (Version 3)
Quarter: 2012Q4

REPORT INFORMATION
  Report Type: 
  Country: US (occurrence: US)
  Receive Date: 20120907
  Receipt Date: 20121207
  Transmission Date: 20130627
  Serious: Yes (Hospitalization, Disabling, Other)
  Sender: FDA-Public Use
  Company Number: US-009507513-2009-198049-NL

PATIENT

DRUGS (9)
  1. NUVARING [Suspect]
     Indication: CONTRACEPTION
     Dosage: UNK
     Route: 067
     Dates: start: 20070228, end: 200707
  2. HORMONES (UNSPECIFIED) [Suspect]
     Indication: PRODUCT USED FOR UNKNOWN INDICATION
  3. TYLENOL [Concomitant]
     Indication: PRODUCT USED FOR UNKNOWN INDICATION
     Dates: start: 200707
  4. IMITREX (SUMATRIPTAN) [Concomitant]
     Indication: PRODUCT USED FOR UNKNOWN INDICATION
     Dates: start: 200707
  5. ROBITUSSIN [Concomitant]
     Indication: PRODUCT USED FOR UNKNOWN INDICATION
     Dates: start: 200707
  6. SUDAFED [Concomitant]
     Indication: PRODUCT USED FOR UNKNOWN INDICATION
     Dates: start: 200707
  7. PROVENTIL [Concomitant]
     Indication: ASTHMA
     Dates: start: 1992
  8. PULMICORT [Concomitant]
     Indication: PRODUCT USED FOR UNKNOWN INDICATION
     Dates: start: 200701, end: 200702
  9. ADVAIR [Concomitant]
     Indication: PRODUCT USED FOR UNKNOWN INDICATION
     Dosage: 1 DF, BID
     Dates: start: 20060419, end: 20070227

REACTIONS (33)
  - Urinary tract infection [Recovered/Resolved]
  - Weight increased [Unknown]
  - Cyst [Unknown]
  - Haematoma [Unknown]
  - Fatigue [Unknown]
  - Diarrhoea [Unknown]
  - Nausea [Unknown]
  - Dyspnoea [Unknown]
  - Gastrooesophageal reflux disease [Unknown]
  - Lipoma [Unknown]
  - Irritability [Unknown]
  - Sleep disorder [Unknown]
  - Hypokalaemia [Recovered/Resolved]
  - Hypothyroidism [Unknown]
  - Intracranial venous sinus thrombosis [Recovered/Resolved]
  - Migraine [Unknown]
  - Vertigo positional [Recovered/Resolved]
  - Diplopia [Recovered/Resolved]
  - Papilloedema [Recovered/Resolved]
  - Sinusitis [Unknown]
  - Rosacea [Unknown]
  - Ear pain [Unknown]
  - Constipation [Unknown]
  - Anaemia [Recovered/Resolved]
  - Irritable bowel syndrome [Unknown]
  - Gallbladder enlargement [Unknown]
  - Contusion [Unknown]
  - Epistaxis [Unknown]
  - Adenoidectomy [Unknown]
  - Anxiety [Unknown]
  - Depression [Unknown]
  - Headache [Recovering/Resolving]
  - Dizziness [Unknown]
